FAERS Safety Report 10600423 (Version 3)
Quarter: 2016Q3

REPORT INFORMATION
  Report Type: Spontaneous
  Country: US (occurrence: US)
  Receive Date: 20141124
  Receipt Date: 20160709
  Transmission Date: 20161109
  Serious: Yes (Hospitalization, Other)
  Sender: FDA-Public Use
  Company Number: US-CIPLA LTD.-2014US02076

PATIENT

DRUGS (3)
  1. LISINOPRIL. [Suspect]
     Active Substance: LISINOPRIL
     Indication: SUICIDE ATTEMPT
     Dosage: 1000 MG, UNK
     Route: 065
  2. AMLODIPINE [Suspect]
     Active Substance: AMLODIPINE BESYLATE
     Indication: SUICIDE ATTEMPT
     Dosage: 500 MG, UNK
     Route: 065
  3. HYDROCHLOROTHIAZIDE. [Suspect]
     Active Substance: HYDROCHLOROTHIAZIDE
     Indication: SUICIDE ATTEMPT
     Dosage: 625 MG, UNK
     Route: 065

REACTIONS (14)
  - Cardiomyopathy [Unknown]
  - Bacteraemia [None]
  - Overdose [Unknown]
  - Depressed level of consciousness [Recovered/Resolved]
  - Hypophosphataemia [Unknown]
  - Shock [Unknown]
  - Ejection fraction decreased [Recovering/Resolving]
  - Hypotension [None]
  - Tachycardia [Unknown]
  - Hyperinsulinaemia [Unknown]
  - Hypokalaemia [Unknown]
  - Pericardial effusion [Unknown]
  - Respiratory failure [Unknown]
  - Renal failure [Unknown]
